FAERS Safety Report 4316451-X (Version None)
Quarter: 2004Q1

REPORT INFORMATION
  Report Type: 
  Country: None (occurrence: None)
  Receive Date: 20040311
  Receipt Date: 20040112
  Transmission Date: 20041129
  Serious: Yes (Hospitalization)
  Sender: FDA-Public Use
  Company Number: 7252

PATIENT
  Age: 69 Year
  Sex: Male

DRUGS (7)
  1. LEUCOVORIN [Suspect]
     Indication: RECTAL CANCER
     Dosage: 75 MG PO
     Route: 048
     Dates: start: 20031211, end: 20040105
  2. TEGAFUR [Suspect]
     Indication: RECTAL CANCER
     Dosage: 450 MG, PO
     Route: 048
     Dates: start: 20031211, end: 20040105
  3. URACIL [Suspect]
  4. LOXOPROFEN SODIUM [Concomitant]
  5. REBAMIPIDE [Concomitant]
  6. CEFCAPENE PIVOXIL HYDROCHLORIDE [Concomitant]
  7. CODEINE PHOSPHATE [Concomitant]

REACTIONS (4)
  - ABDOMINAL PAIN [None]
  - JAUNDICE [None]
  - LOOSE STOOLS [None]
  - PYREXIA [None]
